FAERS Safety Report 8105317-5 (Version None)
Quarter: 2012Q1

REPORT INFORMATION
  Report Type: 
  Country: None (occurrence: None)
  Receive Date: 20120201
  Receipt Date: 20120124
  Transmission Date: 20120608
  Serious: Yes (Hospitalization)
  Sender: FDA-Public Use
  Company Number: PHEH2012US001542

PATIENT
  Sex: Female
  Weight: 57 kg

DRUGS (9)
  1. LYRICA [Concomitant]
     Dosage: 50 MG, UNK
     Route: 048
  2. XANAX [Concomitant]
     Indication: ANXIETY
     Dosage: 0.5 MG, UNK
     Dates: start: 20090101
  3. ONDANSETRON HCL [Concomitant]
     Indication: NAUSEA
     Dosage: 4 MG, PRN
     Route: 048
     Dates: start: 20100101
  4. BACLOFEN [Concomitant]
     Indication: MUSCLE SPASTICITY
     Dosage: 10 MG, TID
     Route: 048
     Dates: start: 20110801
  5. FAMPRIDINE [Concomitant]
     Indication: GAIT DISTURBANCE
     Dosage: 10 MG, BID
     Dates: start: 20110601
  6. PROZAC [Concomitant]
     Indication: DEPRESSION
     Dosage: 10 MG, QD
     Route: 048
  7. VITAMIN D [Concomitant]
     Dosage: UNK UKN, UNK
  8. GILENYA [Suspect]
     Indication: MULTIPLE SCLEROSIS
     Dosage: 0.5 MG, DAILY
     Route: 048
     Dates: start: 20110503, end: 20111230
  9. STEROIDS NOS [Concomitant]
     Indication: EYE PAIN

REACTIONS (15)
  - UPPER RESPIRATORY TRACT INFECTION [None]
  - LYMPHADENOPATHY [None]
  - HEMIPARESIS [None]
  - FATIGUE [None]
  - OROPHARYNGEAL PAIN [None]
  - COUGH [None]
  - RESPIRATORY DISORDER [None]
  - MULTIPLE SCLEROSIS [None]
  - DYSPHONIA [None]
  - VITAL CAPACITY DECREASED [None]
  - DYSPHAGIA [None]
  - BRONCHITIS [None]
  - DYSPNOEA [None]
  - PULMONARY FUNCTION TEST ABNORMAL [None]
  - LUNG HYPERINFLATION [None]
